FAERS Safety Report 8562376-3 (Version None)
Quarter: 2012Q3

REPORT INFORMATION
  Report Type: 
  Country: None (occurrence: None)
  Receive Date: 20120802
  Receipt Date: 20120702
  Transmission Date: 20120928
  Serious: No
  Sender: FDA-Public Use
  Company Number: US-AMGEN-USASP2011034151

PATIENT
  Age: 46 Year
  Sex: Female
  Weight: 78.458 kg

DRUGS (3)
  1. ENBREL [Suspect]
     Indication: PSORIASIS
     Dosage: 50 MG, QWK
     Route: 058
     Dates: start: 20110504, end: 20120209
  2. METHOTREXATE [Concomitant]
     Indication: PSORIATIC ARTHROPATHY
     Dosage: 15 MG, QWK
     Dates: start: 20100223
  3. ENBREL [Suspect]
     Indication: PSORIATIC ARTHROPATHY
     Dosage: UNK
     Dates: start: 20110916, end: 20120209

REACTIONS (14)
  - INSOMNIA [None]
  - ARTHRALGIA [None]
  - INJECTION SITE WARMTH [None]
  - INJECTION SITE SWELLING [None]
  - INJECTION SITE PAIN [None]
  - INJECTION SITE HAEMATOMA [None]
  - BACK PAIN [None]
  - INJECTION SITE ERYTHEMA [None]
  - DRUG INEFFECTIVE [None]
  - CELLULITIS [None]
  - PNEUMONIA [None]
  - GAIT DISTURBANCE [None]
  - JOINT STIFFNESS [None]
  - ARTHROPOD BITE [None]
